FAERS Safety Report 10570348 (Version 18)
Quarter: 2015Q2

REPORT INFORMATION
  Report Type: Spontaneous
  Country: FR (occurrence: FR)
  Receive Date: 20141107
  Receipt Date: 20150619
  Transmission Date: 20150821
  Serious: Yes (Hospitalization, Disabling, Other)
  Sender: FDA-Public Use
  Company Number: FR-JNJFOC-20141102195

PATIENT
  Sex: Male
  Weight: 106 kg

DRUGS (14)
  1. TEMESTA [Concomitant]
     Active Substance: LORAZEPAM
     Route: 065
  2. STAGID [Concomitant]
     Active Substance: METFORMIN PAMOATE
     Route: 065
     Dates: start: 201403
  3. NOVORAPID [Concomitant]
     Active Substance: INSULIN ASPART
     Route: 065
  4. REMICADE [Suspect]
     Active Substance: INFLIXIMAB
     Indication: CROHN^S DISEASE
     Route: 042
     Dates: start: 20140214, end: 201405
  5. INEXIUM [Suspect]
     Active Substance: ESOMEPRAZOLE
     Indication: PRODUCT USED FOR UNKNOWN INDICATION
     Route: 048
     Dates: end: 201405
  6. FLECAINE [Concomitant]
     Active Substance: FLECAINIDE
     Route: 065
  7. SERC [Concomitant]
     Active Substance: BETAHISTINE HYDROCHLORIDE
     Route: 065
  8. REMICADE [Suspect]
     Active Substance: INFLIXIMAB
     Indication: CROHN^S DISEASE
     Dosage: 100 MG
     Route: 042
     Dates: start: 20140214, end: 20140327
  9. TAHOR [Suspect]
     Active Substance: ATORVASTATIN CALCIUM
     Indication: PRODUCT USED FOR UNKNOWN INDICATION
     Route: 048
     Dates: start: 201402, end: 201405
  10. STAGID [Concomitant]
     Active Substance: METFORMIN PAMOATE
     Dosage: ON OUT OF STOCK
     Route: 065
     Dates: end: 201404
  11. REMICADE [Suspect]
     Active Substance: INFLIXIMAB
     Indication: CROHN^S DISEASE
     Route: 042
     Dates: start: 20140327, end: 201405
  12. TAHOR [Suspect]
     Active Substance: ATORVASTATIN CALCIUM
     Indication: PRODUCT USED FOR UNKNOWN INDICATION
     Dosage: DISCONTINUED AT THE TIME CROHN^S DISEASE FLARE UP FOR WHICH PENTASA WAS TAKEN DURING 1 MONTH.
     Route: 048
     Dates: end: 201311
  13. REMICADE [Suspect]
     Active Substance: INFLIXIMAB
     Indication: CROHN^S DISEASE
     Route: 042
     Dates: start: 20140227
  14. LANTUS [Concomitant]
     Active Substance: INSULIN GLARGINE
     Route: 065

REACTIONS (27)
  - Hepatic failure [Unknown]
  - Diarrhoea haemorrhagic [Recovered/Resolved]
  - General physical health deterioration [Not Recovered/Not Resolved]
  - Myalgia [Not Recovered/Not Resolved]
  - Hepatic cirrhosis [Not Recovered/Not Resolved]
  - Suicidal ideation [Unknown]
  - Gait disturbance [Not Recovered/Not Resolved]
  - Headache [Unknown]
  - Urinary incontinence [Not Recovered/Not Resolved]
  - Intervertebral disc protrusion [Unknown]
  - Haematemesis [Not Recovered/Not Resolved]
  - Muscle disorder [Unknown]
  - Disturbance in attention [Unknown]
  - Diarrhoea [Unknown]
  - Vomiting [Not Recovered/Not Resolved]
  - Weight increased [Not Recovered/Not Resolved]
  - Hepatic pain [Unknown]
  - Dizziness [Recovered/Resolved]
  - Immobile [Unknown]
  - Pain [Unknown]
  - Amnesia [Unknown]
  - Anxiety [Unknown]
  - Fatigue [Unknown]
  - Dysstasia [Unknown]
  - Drug-induced liver injury [Recovering/Resolving]
  - Dyspnoea [Unknown]
  - Arthropathy [Unknown]

NARRATIVE: CASE EVENT DATE: 2014
